FAERS Safety Report 7878448 (Version 5)
Quarter: 2015Q2

REPORT INFORMATION
  Report Type: Other
  Country: DK (occurrence: DK)
  Receive Date: 20110330
  Receipt Date: 20150407
  Transmission Date: 20150821
  Serious: Yes (Other)
  Sender: FDA-Public Use
  Company Number: DK-MYLANLABS-2011S1005530

PATIENT

DRUGS (2)
  1. LAMOTRIGINE. [Suspect]
     Active Substance: LAMOTRIGINE
     Indication: EPILEPSY
     Dosage: 700 MG, QD (STYRKE: 100 MG)
     Route: 048
     Dates: start: 2005, end: 2010
  2. PLENDIL [Concomitant]
     Active Substance: FELODIPINE
     Indication: HYPERTENSION
     Dosage: 10 MG, QD (STYRKE: 10 MG)
     Route: 048
     Dates: start: 1994

REACTIONS (6)
  - Lethargy [Recovered/Resolved]
  - Somnolence [Recovered/Resolved]
  - Diarrhoea [Recovered/Resolved]
  - Dyspnoea [Not Recovered/Not Resolved]
  - Chronic obstructive pulmonary disease [Recovered/Resolved]
  - Product substitution issue [Recovered/Resolved]

NARRATIVE: CASE EVENT DATE: 20050101
